FAERS Safety Report 18552950 (Version 1)
Quarter: 2020Q4

REPORT INFORMATION
  Report Type: Spontaneous
  Country: US (occurrence: US)
  Receive Date: 20201127
  Receipt Date: 20201127
  Transmission Date: 20210114
  Serious: Yes (Other)
  Sender: FDA-Public Use
  Company Number: US-AMGEN-USASP2020192126

PATIENT
  Age: 56 Year
  Sex: Female

DRUGS (9)
  1. FLUTICASONE. [Concomitant]
     Active Substance: FLUTICASONE
  2. OTEZLA [Suspect]
     Active Substance: APREMILAST
     Indication: PSORIASIS
     Dosage: 30 MILLIGRAM, BID
     Route: 048
     Dates: start: 20190824
  3. ONDANSETRON [Concomitant]
     Active Substance: ONDANSETRON
  4. CALCIPOTRIENE. [Concomitant]
     Active Substance: CALCIPOTRIENE
  5. FLUCONAZOLE. [Concomitant]
     Active Substance: FLUCONAZOLE
  6. CLOBETASOL [Concomitant]
     Active Substance: CLOBETASOL
  7. GABAPENTIN. [Concomitant]
     Active Substance: GABAPENTIN
  8. OXYCODONE/APAP [Concomitant]
     Active Substance: ACETAMINOPHEN\OXYCODONE HYDROCHLORIDE
  9. NITROFURANTOIN. [Concomitant]
     Active Substance: NITROFURANTOIN

REACTIONS (1)
  - Surgery [Recovered/Resolved]
